FAERS Safety Report 14330775 (Version 1)
Quarter: 2017Q4

REPORT INFORMATION
  Report Type: Report from Study
  Country: US (occurrence: US)
  Receive Date: 20171228
  Receipt Date: 20171228
  Transmission Date: 20180321
  Serious: No
  Sender: FDA-Public Use
  Company Number: US-AMGEN-USASL2017191027

PATIENT
  Age: 25 Year
  Sex: Female

DRUGS (1)
  1. ENBREL [Suspect]
     Active Substance: ETANERCEPT
     Indication: INFECTIVE MYOSITIS
     Dosage: 50 MG, QWK
     Route: 065

REACTIONS (3)
  - Dry mouth [Unknown]
  - Off label use [Unknown]
  - Dry eye [Unknown]
